FAERS Safety Report 20390025 (Version 1)
Quarter: 2022Q1

REPORT INFORMATION
  Report Type: Spontaneous
  Country: SE (occurrence: SE)
  Receive Date: 20220128
  Receipt Date: 20220128
  Transmission Date: 20220424
  Serious: Yes (Other)
  Sender: FDA-Public Use
  Company Number: None

PATIENT
  Age: 56 Year
  Sex: Male

DRUGS (1)
  1. MODAFINIL [Suspect]
     Active Substance: MODAFINIL
     Indication: Narcolepsy
     Dosage: 100 MG, 1-4 TABLETS / DAY
     Route: 048
     Dates: start: 2007

REACTIONS (6)
  - Aggression [Not Recovered/Not Resolved]
  - Amnesia [Not Recovered/Not Resolved]
  - Psychotic disorder [Not Recovered/Not Resolved]
  - Incontinence [Not Recovered/Not Resolved]
  - Paranoia [Unknown]
  - Diarrhoea [Not Recovered/Not Resolved]

NARRATIVE: CASE EVENT DATE: 20110101
